FAERS Safety Report 5114507-5 (Version None)
Quarter: 2006Q3

REPORT INFORMATION
  Report Type: 
  Country: None (occurrence: None)
  Receive Date: 20060926
  Receipt Date: 20060914
  Transmission Date: 20061208
  Serious: Yes (Hospitalization)
  Sender: FDA-Public Use
  Company Number: AU-JNJFOC-20060904974

PATIENT
  Sex: Male
  Weight: 89 kg

DRUGS (4)
  1. TRAMADOL HCL [Suspect]
     Indication: DRUG USE FOR UNKNOWN INDICATION
     Route: 048
     Dates: start: 20060823, end: 20060823
  2. DEXTROPROPOXYPHENE [Suspect]
     Indication: DRUG USE FOR UNKNOWN INDICATION
     Route: 048
     Dates: start: 20060822, end: 20060823
  3. TRIMETHOPRIM [Suspect]
     Indication: URINARY TRACT DISORDER
     Route: 048
     Dates: start: 20060823, end: 20060823
  4. ONDANSETRON HCL [Suspect]
     Indication: NAUSEA
     Route: 042
     Dates: start: 20060823, end: 20060824

REACTIONS (3)
  - BLOOD CREATININE INCREASED [None]
  - LIVER FUNCTION TEST ABNORMAL [None]
  - RENAL IMPAIRMENT [None]
